FAERS Safety Report 10042316 (Version 1)
Quarter: 2014Q1

REPORT INFORMATION
  Report Type: Report from Study
  Country: ES (occurrence: ES)
  Receive Date: 20140327
  Receipt Date: 20140327
  Transmission Date: 20141002
  Serious: Yes (Hospitalization)
  Sender: FDA-Public Use
  Company Number: ES-VERTEX PHARMACEUTICALS INC-2014-001603

PATIENT
  Age: 63 Year
  Sex: Female

DRUGS (18)
  1. VX-950 (TELAPREVIR) [Suspect]
     Indication: CHRONIC HEPATITIS C
     Dosage: 2250 MG, QD
     Route: 048
     Dates: start: 20130903, end: 20131108
  2. Z-PEGYLATED INTERFERON-2A [Suspect]
     Indication: CHRONIC HEPATITIS C
     Dosage: 180 ?G, QW
     Route: 058
     Dates: start: 20130903, end: 20131105
  3. Z-RIBAVIRIN [Suspect]
     Indication: CHRONIC HEPATITIS C
     Dosage: 1000 MG, UNK
     Route: 048
     Dates: start: 20130903, end: 20131108
  4. PEGINTERFERON LAMBDA-1A [Suspect]
     Indication: CHRONIC HEPATITIS C
     Dosage: 180 ?G, QW
     Route: 058
     Dates: start: 20130903, end: 20131105
  5. LEVOTHYROXINE [Concomitant]
     Dates: start: 2005
  6. DESLORATADINE [Concomitant]
     Dates: start: 20131001
  7. METHYLPREDNISOLONE [Concomitant]
     Route: 061
     Dates: start: 20131001
  8. OMEPRAZOLE [Concomitant]
     Dates: start: 20131001
  9. METOCLOPRAMIDE [Concomitant]
     Dates: start: 20131001
  10. HYDROXYZINE [Concomitant]
     Dates: start: 20131015
  11. DALTEPARIN [Concomitant]
  12. METAMIZOLE [Concomitant]
  13. LORAZEPAM [Concomitant]
  14. DIAZEPAM [Concomitant]
  15. SODIUM BICARBONATE [Concomitant]
  16. FUROSEMIDE [Concomitant]
  17. GLUCOSALINE [Concomitant]
  18. PARACETAMOL [Concomitant]
     Dosage: DOSAGE FORM: UNKNOWN

REACTIONS (1)
  - Pancreatitis acute [Recovered/Resolved]
